FAERS Safety Report 23822278 (Version 1)
Quarter: 2024Q2

REPORT INFORMATION
  Report Type: Spontaneous
  Country: EG (occurrence: EG)
  Receive Date: 20240506
  Receipt Date: 20240506
  Transmission Date: 20240716
  Serious: Yes (Hospitalization, Other)
  Sender: FDA-Public Use
  Company Number: EG-PFIZER INC-PV202400057821

PATIENT
  Age: 49 Year
  Sex: Female

DRUGS (7)
  1. CARBOPLATIN [Suspect]
     Active Substance: CARBOPLATIN
     Indication: Breast cancer
     Dosage: UNK, CYCLIC
  2. CARBOPLATIN [Suspect]
     Active Substance: CARBOPLATIN
     Dosage: 4TH CYCLE
     Dates: start: 20240212, end: 20240212
  3. CARBOPLATIN [Suspect]
     Active Substance: CARBOPLATIN
     Dosage: 5TH CYCLE
     Dates: start: 20240304, end: 20240304
  4. TAXOTERE [Suspect]
     Active Substance: DOCETAXEL
     Indication: Breast cancer
     Dosage: UNK UNK, CYCLIC
  5. TAXOTERE [Suspect]
     Active Substance: DOCETAXEL
     Dosage: 4TH CYCLE
     Dates: start: 20240212, end: 20240212
  6. TAXOTERE [Suspect]
     Active Substance: DOCETAXEL
     Dosage: 5TH CYCLE
     Dates: start: 20240304, end: 20240304
  7. PHESGO [Suspect]
     Active Substance: HYALURONIDASE-ZZXF\PERTUZUMAB\TRASTUZUMAB
     Indication: Breast cancer
     Dosage: UNK
     Dates: start: 20240325

REACTIONS (14)
  - Arthralgia [Not Recovered/Not Resolved]
  - Neuropathy peripheral [Not Recovered/Not Resolved]
  - Abscess limb [Not Recovered/Not Resolved]
  - Nasal abscess [Not Recovered/Not Resolved]
  - Abscess oral [Not Recovered/Not Resolved]
  - Feeding disorder [Not Recovered/Not Resolved]
  - Stomatitis [Not Recovered/Not Resolved]
  - Bone pain [Not Recovered/Not Resolved]
  - Dyspepsia [Not Recovered/Not Resolved]
  - Abdominal discomfort [Not Recovered/Not Resolved]
  - Diarrhoea [Not Recovered/Not Resolved]
  - Erythema [Not Recovered/Not Resolved]
  - Injection site discolouration [Not Recovered/Not Resolved]
  - Injection site swelling [Not Recovered/Not Resolved]

NARRATIVE: CASE EVENT DATE: 20240325
